FAERS Safety Report 10733456 (Version 1)
Quarter: 2015Q1

REPORT INFORMATION
  Report Type: Spontaneous
  Country: AT (occurrence: AT)
  Receive Date: 20150123
  Receipt Date: 20150123
  Transmission Date: 20150721
  Serious: Yes (Hospitalization)
  Sender: FDA-Public Use
  Company Number: AT-BAYER-2014-185034

PATIENT
  Age: 73 Year
  Sex: Male
  Weight: 84 kg

DRUGS (2)
  1. ADEMPAS [Suspect]
     Active Substance: RIOCIGUAT
     Indication: PULMONARY HYPERTENSION
     Dosage: 1 MG, TID
     Route: 048
     Dates: start: 20141120, end: 20141123
  2. ADEMPAS [Suspect]
     Active Substance: RIOCIGUAT
     Indication: PULMONARY HYPERTENSION
     Dosage: UNK

REACTIONS (5)
  - Oedema peripheral [Recovering/Resolving]
  - Brain natriuretic peptide abnormal [None]
  - Brain natriuretic peptide abnormal [None]
  - Brain natriuretic peptide abnormal [None]
  - Brain natriuretic peptide abnormal [None]

NARRATIVE: CASE EVENT DATE: 20141123
